FAERS Safety Report 9679248 (Version 1)
Quarter: 2013Q4

REPORT INFORMATION
  Report Type: Spontaneous
  Country: US (occurrence: US)
  Receive Date: 20131109
  Receipt Date: 20131109
  Transmission Date: 20140711
  Serious: Yes (Other)
  Sender: FDA-Public Use
  Company Number: US-JNJFOC-20131016530

PATIENT
  Age: 54 Year
  Sex: Male
  Weight: 104.33 kg

DRUGS (3)
  1. ZYRTEC TABLETS (OTC) 10MG [Suspect]
     Route: 048
  2. ZYRTEC TABLETS (OTC) 10MG [Suspect]
     Indication: MULTIPLE ALLERGIES
     Dosage: NIGHTLY
     Route: 048
  3. ECOTRIN [Concomitant]
     Indication: PRODUCT USED FOR UNKNOWN INDICATION
     Route: 065

REACTIONS (4)
  - Large intestinal haemorrhage [Recovered/Resolved]
  - Abdominal pain [Recovered/Resolved]
  - Gastric disorder [Recovered/Resolved]
  - Somnolence [Recovered/Resolved]
